FAERS Safety Report 9490902 (Version 1)
Quarter: 2013Q3

REPORT INFORMATION
  Report Type: Spontaneous
  Country: US (occurrence: US)
  Receive Date: 20130830
  Receipt Date: 20130830
  Transmission Date: 20140515
  Serious: No
  Sender: FDA-Public Use
  Company Number: US-PFIZER INC-2013245744

PATIENT
  Age: 64 Year
  Sex: Female
  Weight: 126.53 kg

DRUGS (1)
  1. LEVOTHYROXINE SODIUM [Suspect]
     Dosage: UNK

REACTIONS (3)
  - Hyperhidrosis [Unknown]
  - Head discomfort [Unknown]
  - General physical health deterioration [Unknown]
